FAERS Safety Report 25256825 (Version 1)
Quarter: 2025Q2

REPORT INFORMATION
  Report Type: Spontaneous
  Country: US (occurrence: US)
  Receive Date: 20250430
  Receipt Date: 20250430
  Transmission Date: 20250716
  Serious: No
  Sender: LUNDBECK
  Company Number: US-LUNDBECK-DKLU4013635

PATIENT
  Age: 43 Year
  Sex: Female
  Weight: 78.925 kg

DRUGS (11)
  1. VYEPTI [Suspect]
     Active Substance: EPTINEZUMAB-JJMR
     Indication: Migraine
     Dosage: 300 MILLIGRAM
     Route: 041
     Dates: start: 20250415
  2. QULIPTA [Concomitant]
     Active Substance: ATOGEPANT
     Indication: Product used for unknown indication
     Dosage: 60 MILLIGRAM
     Route: 048
  3. PANTOPRAZOLE SODIUM [Concomitant]
     Active Substance: PANTOPRAZOLE SODIUM
     Indication: Product used for unknown indication
     Dosage: 40 MILLIGRAM
     Route: 048
  4. ELIQUIS [Concomitant]
     Active Substance: APIXABAN
     Indication: Product used for unknown indication
     Dosage: 5 MILLIGRAM
     Route: 048
  5. VALACYCLOVIR HYDROCHLORIDE [Concomitant]
     Active Substance: VALACYCLOVIR HYDROCHLORIDE
     Indication: Product used for unknown indication
     Dosage: 500 MILLIGRAM
     Route: 048
  6. VITAMIN C [Concomitant]
     Active Substance: ASCORBIC ACID
     Indication: Product used for unknown indication
     Dosage: 1000 MILLIGRAM
     Route: 048
  7. ZYRTEC [Concomitant]
     Active Substance: CETIRIZINE HYDROCHLORIDE
     Indication: Product used for unknown indication
     Dosage: 10 MILLIGRAM
     Route: 048
  8. VITAMIN D3 [Concomitant]
     Active Substance: CHOLECALCIFEROL
     Indication: Product used for unknown indication
     Dosage: 50 MICROGRAM
     Route: 048
  9. FIORICET [Concomitant]
     Active Substance: ACETAMINOPHEN\BUTALBITAL\CAFFEINE
     Indication: Migraine
     Dosage: 1 DOSAGE FORM
     Route: 048
  10. TYLENOL EXTRA STRENGTH [Concomitant]
     Active Substance: ACETAMINOPHEN
     Indication: Migraine
     Dosage: 500 MILLIGRAM
     Route: 048
  11. ATROVENT HFA [Concomitant]
     Active Substance: IPRATROPIUM BROMIDE
     Indication: Product used for unknown indication

REACTIONS (2)
  - Nasal congestion [Recovering/Resolving]
  - Rhinitis [Recovering/Resolving]

NARRATIVE: CASE EVENT DATE: 20250415
